FAERS Safety Report 7095495-1 (Version None)
Quarter: 2010Q4

REPORT INFORMATION
  Report Type: 
  Country: None (occurrence: None)
  Receive Date: 20101111
  Receipt Date: 20101101
  Transmission Date: 20110411
  Serious: Yes (Other)
  Sender: FDA-Public Use
  Company Number: US-ELI_LILLY_AND_COMPANY-US201011001587

PATIENT
  Sex: Female

DRUGS (1)
  1. SYMBYAX [Suspect]
     Dosage: UNK, 6/25MG
     Route: 065

REACTIONS (1)
  - CATATONIA [None]
